FAERS Safety Report 6903284-0 (Version None)
Quarter: 2010Q3

REPORT INFORMATION
  Report Type: 
  Country: None (occurrence: None)
  Receive Date: 20100803
  Receipt Date: 20080728
  Transmission Date: 20110219
  Serious: Yes (Other)
  Sender: FDA-Public Use
  Company Number: US-PFIZER INC-2008049259

PATIENT
  Sex: Female
  Weight: 81.6 kg

DRUGS (4)
  1. LYRICA [Suspect]
     Indication: FIBROMYALGIA
     Dates: start: 20080101
  2. TRAZODONE [Concomitant]
  3. WELLBUTRIN [Concomitant]
  4. RISPERDAL [Concomitant]

REACTIONS (2)
  - DRUG EFFECT DECREASED [None]
  - VISION BLURRED [None]
